FAERS Safety Report 15370464 (Version 1)
Quarter: 2018Q3

REPORT INFORMATION
  Report Type: Spontaneous
  Country: US (occurrence: US)
  Receive Date: 20180904
  Receipt Date: 20180904
  Transmission Date: 20181010
  Serious: Yes (Disabling)
  Sender: FDA-Public Use
  Company Number: None

PATIENT
  Age: 63 Year
  Sex: Female
  Weight: 60.75 kg

DRUGS (6)
  1. TOPRAL [Concomitant]
     Active Substance: SULTOPRIDE HYDROCHLORIDE
  2. CLONAZEPAM. [Concomitant]
     Active Substance: CLONAZEPAM
  3. VITAMIN D [Concomitant]
     Active Substance: CHOLECALCIFEROL
  4. VALSARTAN. [Concomitant]
     Active Substance: VALSARTAN
  5. CRESTOR [Concomitant]
     Active Substance: ROSUVASTATIN CALCIUM
  6. IRBESARTAN AND HYDROCHOROTHIAZIDE [Suspect]
     Active Substance: HYDROCHLOROTHIAZIDE\IRBESARTAN
     Indication: HYPERTENSION
     Dosage: ?          QUANTITY:90 TABLET(S);?
     Route: 048
     Dates: start: 20180902, end: 20180904

REACTIONS (7)
  - Dysgeusia [None]
  - Blood pressure increased [None]
  - Condition aggravated [None]
  - Insomnia [None]
  - Headache [None]
  - Drug effect decreased [None]
  - Dyspepsia [None]

NARRATIVE: CASE EVENT DATE: 20180902
